FAERS Safety Report 9335053 (Version 1)
Quarter: 2013Q2

REPORT INFORMATION
  Report Type: Spontaneous
  Country: US (occurrence: US)
  Receive Date: 20130606
  Receipt Date: 20130606
  Transmission Date: 20140414
  Serious: Yes (Hospitalization)
  Sender: FDA-Public Use
  Company Number: US-GLAXOSMITHKLINE-A0790593A

PATIENT
  Age: 58 Year
  Sex: Male
  Weight: 104.5 kg

DRUGS (1)
  1. AVANDIA [Suspect]
     Indication: DIABETES MELLITUS
     Route: 048
     Dates: start: 1999, end: 2008

REACTIONS (4)
  - Acute myocardial infarction [Unknown]
  - Myocardial ischaemia [Unknown]
  - Cardiac failure congestive [Unknown]
  - Angina pectoris [Unknown]
